FAERS Safety Report 16969325 (Version 1)
Quarter: 2019Q4

REPORT INFORMATION
  Report Type: Spontaneous
  Country: DE (occurrence: DE)
  Receive Date: 20191029
  Receipt Date: 20191029
  Transmission Date: 20200122
  Serious: Yes (Other)
  Sender: FDA-Public Use
  Company Number: DE-VELOXIS PHARMACEUTICALS-2019VELDE-000585

PATIENT
  Age: 39 Year
  Sex: Male
  Weight: 74 kg

DRUGS (9)
  1. INFLIXIMAB [Concomitant]
     Active Substance: INFLIXIMAB
     Indication: COLITIS ULCERATIVE
     Dosage: 300 MG, UNKNOWN FREQ.
     Route: 065
  2. MESALAZIN [Concomitant]
     Active Substance: MESALAMINE
     Indication: PRODUCT USED FOR UNKNOWN INDICATION
     Dosage: UNK UNK, UNKNOWN FREQ.
     Route: 048
  3. ENVARSUS XR [Suspect]
     Active Substance: TACROLIMUS
     Indication: COLITIS ULCERATIVE
     Dosage: UNK UNK, UNKNOWN FREQ.
     Route: 065
     Dates: end: 201704
  4. MESALAZIN [Concomitant]
     Active Substance: MESALAMINE
     Dosage: UNK UNK, UNKNOWN FREQ.
     Route: 054
  5. MESALAZIN [Concomitant]
     Active Substance: MESALAMINE
     Dosage: UNK UNK, UNKNOWN FREQ.
     Route: 048
  6. GOLIMUMAB [Concomitant]
     Active Substance: GOLIMUMAB
     Indication: COLITIS ULCERATIVE
     Dosage: UNK UNK, UNKNOWN FREQ.
     Route: 065
  7. BUDESONIDE. [Concomitant]
     Active Substance: BUDESONIDE
     Indication: PRODUCT USED FOR UNKNOWN INDICATION
     Dosage: UNK UNK, ONCE DAILY (AT NIGHT)
     Route: 065
  8. MESALAZIN [Concomitant]
     Active Substance: MESALAMINE
     Dosage: UNK UNK, UNKNOWN FREQ.
     Route: 054
  9. VEDOLIZUMAB [Concomitant]
     Active Substance: VEDOLIZUMAB
     Indication: COLITIS ULCERATIVE
     Dosage: UNK UNK, UNKNOWN FREQ.
     Route: 065

REACTIONS (6)
  - Haematochezia [Unknown]
  - Restlessness [Unknown]
  - Tremor [Unknown]
  - Anaemia [Unknown]
  - Hypoalbuminaemia [Unknown]
  - Drug ineffective for unapproved indication [Unknown]
